FAERS Safety Report 15330424 (Version 3)
Quarter: 2019Q1

REPORT INFORMATION
  Report Type: Spontaneous
  Country: JP (occurrence: JP)
  Receive Date: 20180829
  Receipt Date: 20190206
  Transmission Date: 20190417
  Serious: Yes (Death)
  Sender: FDA-Public Use
  Company Number: JP-ACTELION-A-CH2018-178169

PATIENT
  Age: 90 Year
  Sex: Male
  Weight: 60.6 kg

DRUGS (9)
  1. UPTRAVI [Suspect]
     Active Substance: SELEXIPAG
     Indication: PULMONARY ARTERIAL HYPERTENSION
     Dosage: 0.2 MG, BID
     Route: 048
     Dates: start: 20180713, end: 20180725
  2. ADCIRCA [Concomitant]
     Active Substance: TADALAFIL
     Indication: PULMONARY ARTERIAL HYPERTENSION
     Dosage: 20 MG, QD
     Dates: start: 20180627, end: 20180727
  3. ANORO ELLIPTA [Concomitant]
     Active Substance: UMECLIDINIUM BROMIDE\VILANTEROL TRIFENATATE
     Indication: SALIVARY GLAND CANCER
     Dosage: 1 DF, QD
     Dates: start: 20180611, end: 20180727
  4. SOLU-MEDROL [Concomitant]
     Active Substance: METHYLPREDNISOLONE SODIUM SUCCINATE
     Indication: SALIVARY GLAND CANCER
     Dosage: 500 MG, QD
     Dates: start: 20180713, end: 20180715
  5. AZOSEMIDE [Concomitant]
     Active Substance: AZOSEMIDE
     Indication: CARDIAC FAILURE
     Dosage: 60 MG, QD
     Dates: end: 20180727
  6. UPTRAVI [Suspect]
     Active Substance: SELEXIPAG
     Dosage: 0.4 MG, BID
     Route: 048
     Dates: start: 20180726, end: 20180727
  7. ADRENAL [Concomitant]
     Active Substance: EPINEPHRINE
  8. PREDONINE [Concomitant]
     Active Substance: PREDNISOLONE
     Indication: SALIVARY GLAND CANCER
     Dosage: 40 MG, QD
     Dates: start: 20180716, end: 20180729
  9. SPIRONOLACTONE. [Concomitant]
     Active Substance: SPIRONOLACTONE
     Indication: CARDIAC FAILURE
     Dosage: 25 MG, QD
     Dates: end: 20180727

REACTIONS (2)
  - Interstitial lung disease [Fatal]
  - Pulmonary arterial hypertension [Fatal]

NARRATIVE: CASE EVENT DATE: 20180724
